FAERS Safety Report 11057944 (Version 1)
Quarter: 2015Q2

REPORT INFORMATION
  Report Type: Spontaneous
  Country: FR (occurrence: FR)
  Receive Date: 20150423
  Receipt Date: 20150423
  Transmission Date: 20150821
  Serious: Yes (Life-Threatening, Hospitalization)
  Sender: FDA-Public Use
  Company Number: FR-AUROBINDO-AUR-APL-2015-03450

PATIENT
  Age: 58 Year
  Sex: Female

DRUGS (1)
  1. ALPRAZOLAM ARROW [Suspect]
     Active Substance: ALPRAZOLAM
     Indication: ANAESTHETIC PREMEDICATION
     Dosage: UNK
     Route: 048
     Dates: start: 20150323, end: 20150323

REACTIONS (7)
  - Anaphylactic shock [Unknown]
  - Hypotension [Recovered/Resolved]
  - Vasoplegia syndrome [Unknown]
  - Blood pressure systolic decreased [Unknown]
  - Coma [Recovered/Resolved]
  - Shock [Recovered/Resolved]
  - Endotracheal intubation [Recovered/Resolved]

NARRATIVE: CASE EVENT DATE: 20150323
